FAERS Safety Report 7078899-2 (Version None)
Quarter: 2010Q4

REPORT INFORMATION
  Report Type: 
  Country: None (occurrence: None)
  Receive Date: 20101102
  Receipt Date: 20101026
  Transmission Date: 20110411
  Serious: Yes (Other)
  Sender: FDA-Public Use
  Company Number: US-PFIZER INC-2010137029

PATIENT
  Sex: Female
  Weight: 64.853 kg

DRUGS (3)
  1. CHANTIX [Suspect]
     Indication: SMOKING CESSATION THERAPY
     Dosage: 0.5 MG, 1X/DAY
     Dates: start: 20100601
  2. CHANTIX [Suspect]
     Dosage: 1 MG, 2X/DAY
     Route: 048
     Dates: start: 20100601
  3. CHANTIX [Suspect]
     Dosage: UNK
     Route: 048
     Dates: start: 20101001

REACTIONS (4)
  - FEELING ABNORMAL [None]
  - IRRITABILITY [None]
  - SKIN EXFOLIATION [None]
  - SLEEP DISORDER [None]
